FAERS Safety Report 12595881 (Version 1)
Quarter: 2016Q3

REPORT INFORMATION
  Report Type: Spontaneous
  Country: JP (occurrence: JP)
  Receive Date: 20160726
  Receipt Date: 20160726
  Transmission Date: 20161109
  Serious: Yes (Death)
  Sender: FDA-Public Use
  Company Number: JP-BAYER-2016-132760

PATIENT
  Age: 69 Year
  Sex: Male
  Weight: 66.1 kg

DRUGS (10)
  1. VILDAGLIPTIN [Concomitant]
     Active Substance: VILDAGLIPTIN
     Dosage: UNK
     Route: 048
  2. XARELTO [Suspect]
     Active Substance: RIVAROXABAN
     Indication: ATRIAL FIBRILLATION
     Dosage: 15 MG, QD
     Route: 048
     Dates: start: 20150216
  3. CRESTOR [Concomitant]
     Active Substance: ROSUVASTATIN CALCIUM
     Dosage: UNK
     Route: 048
     Dates: start: 20160127
  4. PRASUGREL [Suspect]
     Active Substance: PRASUGREL
     Dosage: 3.750 MG, UNK
     Route: 048
     Dates: start: 20151219
  5. PARIET [Concomitant]
     Active Substance: RABEPRAZOLE SODIUM
     Dosage: UNK
     Route: 048
     Dates: start: 20151028
  6. AMARYL [Concomitant]
     Active Substance: GLIMEPIRIDE
     Dosage: UNK
     Route: 048
  7. BAYASPIRIN [Suspect]
     Active Substance: ASPIRIN
     Dosage: 100 MG, UNK
     Route: 048
     Dates: start: 20151204
  8. BEPRICOR [Concomitant]
     Active Substance: BEPRIDIL
     Dosage: UNK
     Route: 048
     Dates: start: 20150318
  9. XARELTO [Suspect]
     Active Substance: RIVAROXABAN
     Indication: CEREBROVASCULAR ACCIDENT PROPHYLAXIS
  10. PRASUGREL [Suspect]
     Active Substance: PRASUGREL
     Dosage: 20 MG, QD
     Route: 048
     Dates: start: 20151218, end: 20151218

REACTIONS (2)
  - Cerebral haemorrhage [Fatal]
  - Headache [Fatal]

NARRATIVE: CASE EVENT DATE: 20160430
